FAERS Safety Report 14343605 (Version 1)
Quarter: 2018Q1

REPORT INFORMATION
  Report Type: Spontaneous
  Country: SI (occurrence: SI)
  Receive Date: 20180102
  Receipt Date: 20180102
  Transmission Date: 20180509
  Serious: Yes (Hospitalization, Other)
  Sender: FDA-Public Use
  Company Number: SI-PFIZER INC-2017554347

PATIENT
  Age: 65 Year
  Sex: Male
  Weight: 78 kg

DRUGS (6)
  1. NEXIUM [Concomitant]
     Active Substance: ESOMEPRAZOLE MAGNESIUM
     Dosage: 20 MG, 1X/DAY
  2. REMICADE [Suspect]
     Active Substance: INFLIXIMAB
     Dosage: DOSAGE FORM: LYOPHILIZED POWDER, 350MG
     Route: 042
     Dates: start: 20170309
  3. NAKLOFEN DUO [Concomitant]
     Dosage: 150 MG, 1X/DAY
     Route: 065
  4. TAVEGYL [Suspect]
     Active Substance: CLEMASTINE FUMARATE
     Indication: ANAPHYLACTIC REACTION
     Dosage: ONE AMPOULE
     Route: 065
  5. SOLU-CORTEF [Suspect]
     Active Substance: HYDROCORTISONE SODIUM SUCCINATE
     Indication: ANAPHYLACTIC REACTION
     Dosage: 100 MG, UNK
     Route: 042
  6. REMICADE [Suspect]
     Active Substance: INFLIXIMAB
     Indication: ANKYLOSING SPONDYLITIS
     Dosage: DOSAGE FORM: LYOPHILIZED POWDER, 350MG
     Route: 042
     Dates: start: 20140530

REACTIONS (2)
  - Infusion related reaction [Recovered/Resolved]
  - Anaphylactic reaction [Recovered/Resolved]

NARRATIVE: CASE EVENT DATE: 20170309
